FAERS Safety Report 7273010-7 (Version None)
Quarter: 2011Q1

REPORT INFORMATION
  Report Type: 
  Country: None (occurrence: None)
  Receive Date: 20110203
  Receipt Date: 20110126
  Transmission Date: 20110831
  Serious: Yes (Life-Threatening, Hospitalization)
  Sender: FDA-Public Use
  Company Number: B0692477A

PATIENT
  Sex: Male

DRUGS (7)
  1. PREDONINE [Concomitant]
     Dosage: 15MG PER DAY
     Route: 048
     Dates: start: 20101228, end: 20101230
  2. LOXONIN [Suspect]
     Dosage: 180MG PER DAY
     Route: 048
     Dates: start: 20101228, end: 20101230
  3. BUFFERIN [Concomitant]
     Indication: ANGINA PECTORIS
     Dosage: 81MG PER DAY
     Route: 048
     Dates: end: 20101230
  4. PRAVASTATIN SODIUM [Concomitant]
     Dosage: 10MG PER DAY
     Route: 048
     Dates: end: 20101230
  5. VALTREX [Suspect]
     Indication: HERPES ZOSTER
     Dosage: 3000MG PER DAY
     Route: 048
     Dates: start: 20101228, end: 20101230
  6. ALLOZYM [Concomitant]
     Dosage: 10MG PER DAY
     Route: 048
     Dates: end: 20101230
  7. ACINON [Concomitant]
     Indication: GASTRITIS
     Dosage: 150MG PER DAY
     Route: 048
     Dates: end: 20101230

REACTIONS (4)
  - GAIT DISTURBANCE [None]
  - DYSARTHRIA [None]
  - RENAL FAILURE ACUTE [None]
  - ENCEPHALOPATHY [None]
